FAERS Safety Report 6547113-6 (Version None)
Quarter: 2010Q1

REPORT INFORMATION
  Report Type: 
  Country: None (occurrence: None)
  Receive Date: 20100122
  Receipt Date: 20100115
  Transmission Date: 20100710
  Serious: No
  Sender: FDA-Public Use
  Company Number: TR-ELI_LILLY_AND_COMPANY-TR201001000137

PATIENT
  Sex: Female

DRUGS (8)
  1. HUMULIN R [Suspect]
     Indication: GESTATIONAL DIABETES
     Dosage: 34 IU, EACH MORNING
     Route: 058
     Dates: start: 20090915, end: 20091230
  2. HUMULIN R [Suspect]
     Dosage: 34 IU, OTHER
     Route: 058
     Dates: start: 20090915, end: 20091230
  3. HUMULIN R [Suspect]
     Dosage: 36 IU, EACH EVENING
     Route: 058
     Dates: start: 20090915, end: 20091230
  4. HUMULIN N [Suspect]
     Indication: GESTATIONAL DIABETES
     Dosage: 36 IU, EACH MORNING
     Route: 058
     Dates: start: 20090915, end: 20091230
  5. HUMULIN N [Suspect]
     Dosage: 36 IU, EACH EVENING
     Route: 058
     Dates: start: 20090915, end: 20091230
  6. ALFAMET [Concomitant]
     Indication: HYPERTENSION
     Dosage: UNK UNK, 3/D
     Route: 048
     Dates: start: 20090915, end: 20091230
  7. INSULIN [Concomitant]
  8. ELEVIT PRONATAL [Concomitant]

REACTIONS (3)
  - DRUG EXPOSURE DURING PREGNANCY [None]
  - DRUG INEFFECTIVE [None]
  - SELECTIVE ABORTION [None]
